FAERS Safety Report 7897369-2 (Version None)
Quarter: 2011Q4

REPORT INFORMATION
  Report Type: 
  Country: None (occurrence: None)
  Receive Date: 20111107
  Receipt Date: 20111102
  Transmission Date: 20120403
  Serious: Yes (Death, Hospitalization)
  Sender: FDA-Public Use
  Company Number: GR-BAYER-2011-018038

PATIENT
  Age: 66 Year
  Sex: Male
  Weight: 70 kg

DRUGS (1)
  1. NEXAVAR [Suspect]
     Indication: HEPATIC NEOPLASM MALIGNANT
     Dosage: 400 MG, BID
     Route: 048
     Dates: start: 20110111, end: 20110128

REACTIONS (10)
  - DECREASED APPETITE [None]
  - PERFORMANCE STATUS DECREASED [None]
  - HEPATIC ENCEPHALOPATHY [None]
  - FATIGUE [None]
  - PORTAL VEIN THROMBOSIS [None]
  - JAUNDICE [None]
  - CACHEXIA [None]
  - VOMITING [None]
  - ASCITES [None]
  - HEPATIC NEOPLASM MALIGNANT [None]
